FAERS Safety Report 8245125-8 (Version None)
Quarter: 2012Q1

REPORT INFORMATION
  Report Type: 
  Country: None (occurrence: None)
  Receive Date: 20120329
  Receipt Date: 20120321
  Transmission Date: 20120608
  Serious: Yes (Other)
  Sender: FDA-Public Use
  Company Number: IT-GLAXOSMITHKLINE-B0792055A

PATIENT
  Age: 12 Year
  Sex: Male

DRUGS (3)
  1. KHELLIN [Concomitant]
     Route: 065
     Dates: end: 20110901
  2. CLOBETASOL PROPIONATE [Suspect]
     Indication: VITILIGO
     Route: 061
     Dates: start: 20101001, end: 20110601
  3. TACROLIMUS [Suspect]
     Indication: VITILIGO
     Route: 061
     Dates: start: 20110901, end: 20111201

REACTIONS (1)
  - MELANOCYTIC NAEVUS [None]
